FAERS Safety Report 7628680-8 (Version None)
Quarter: 2011Q3

REPORT INFORMATION
  Report Type: 
  Country: None (occurrence: None)
  Receive Date: 20110722
  Receipt Date: 20110715
  Transmission Date: 20111222
  Serious: Yes (Other)
  Sender: FDA-Public Use
  Company Number: US-BAYER-201020443NA

PATIENT
  Age: 19 Year
  Sex: Female

DRUGS (1)
  1. YASMIN [Suspect]
     Dosage: AS USED DOSE: UNK
     Route: 048
     Dates: start: 20030711, end: 20030714

REACTIONS (2)
  - DEEP VEIN THROMBOSIS [None]
  - INJURY [None]
